FAERS Safety Report 6302640-1 (Version None)
Quarter: 2009Q3

REPORT INFORMATION
  Report Type: 
  Country: None (occurrence: None)
  Receive Date: 20090810
  Receipt Date: 20090803
  Transmission Date: 20100115
  Serious: Yes (Other)
  Sender: FDA-Public Use
  Company Number: US-BAYER-200922650NA

PATIENT
  Sex: Female

DRUGS (1)
  1. AVELOX [Suspect]
     Indication: DRUG USE FOR UNKNOWN INDICATION
     Dosage: UNIT DOSE: 400 MG
     Dates: start: 20090501

REACTIONS (4)
  - ANAPHYLACTIC SHOCK [None]
  - OEDEMA PERIPHERAL [None]
  - THROAT TIGHTNESS [None]
  - URTICARIA [None]
